FAERS Safety Report 23145901 (Version 1)
Quarter: 2023Q4

REPORT INFORMATION
  Report Type: Other
  Country: DE (occurrence: DE)
  Receive Date: 20231104
  Receipt Date: 20231104
  Transmission Date: 20240110
  Serious: Yes (Hospitalization, Other)
  Sender: FDA-Public Use
  Company Number: DE-MACLEODS PHARMACEUTICALS US LTD-MAC2023044090

PATIENT

DRUGS (15)
  1. VALSARTAN [Suspect]
     Active Substance: VALSARTAN
     Indication: Hypertension
     Dosage: 160 MILLIGRAM, QD, START DATE: 2009
     Route: 065
  2. VALSARTAN [Suspect]
     Active Substance: VALSARTAN
     Dosage: 160 MILLIGRAM, QD, START DATE: 2012
     Route: 065
  3. VALSARTAN [Suspect]
     Active Substance: VALSARTAN
     Dosage: 160 MILLIGRAM, QD, START DATE: JAN 2014 AND STOP DATE: 2018
     Route: 065
  4. DIOVAN [Suspect]
     Active Substance: VALSARTAN
     Indication: Hypertension
     Dosage: 160 MILLIGRAM, QD
     Route: 065
  5. VALSARTAN [Suspect]
     Active Substance: VALSARTAN
     Indication: Hypertension
     Dosage: 160 MILLIGRAM, QD, 1A PHARMA
     Route: 065
     Dates: start: 20211216
  6. PANTOPRAZOLE [Concomitant]
     Active Substance: PANTOPRAZOLE
     Indication: Product used for unknown indication
     Dosage: UNK, 40 OT
     Route: 065
  7. ASPIRIN [Concomitant]
     Active Substance: ASPIRIN
     Indication: Product used for unknown indication
     Dosage: UNK, START DATE: 2013
     Route: 065
  8. ASPIRIN [Concomitant]
     Active Substance: ASPIRIN
     Dosage: UNK, 100 OT
     Route: 065
  9. CANNABIDIOL [Concomitant]
     Active Substance: CANNABIDIOL
     Indication: Product used for unknown indication
     Dosage: UNK
     Route: 065
  10. FOLIC ACID [Concomitant]
     Active Substance: FOLIC ACID
     Indication: Product used for unknown indication
     Dosage: UNK, START DATE: 2018 AND STOP DATE: 2019
     Route: 065
  11. BISOPROLOL [Concomitant]
     Active Substance: BISOPROLOL\BISOPROLOL FUMARATE
     Indication: Product used for unknown indication
     Dosage: 5 MILLIGRAM (START DATE: 2013)
     Route: 065
  12. METFORMIN [Concomitant]
     Active Substance: METFORMIN HYDROCHLORIDE
     Indication: Product used for unknown indication
     Dosage: UNK
     Route: 065
  13. PREDNISOLONE [Concomitant]
     Active Substance: PREDNISOLONE
     Indication: Product used for unknown indication
     Dosage: 5 MILLIGRAM
     Route: 065
  14. METHOTREXATE [Concomitant]
     Active Substance: METHOTREXATE
     Indication: Product used for unknown indication
     Dosage: UNK, START DATE: 2018 AND STOP DATE: 2019
     Route: 065
  15. TAFLUPROST [Concomitant]
     Active Substance: TAFLUPROST
     Indication: Product used for unknown indication
     Dosage: UNK, START DATE: 2015
     Route: 065

REACTIONS (27)
  - Lymphadenopathy [Unknown]
  - Wound abscess [Unknown]
  - Tonsil cancer [Recovering/Resolving]
  - General physical health deterioration [Recovering/Resolving]
  - Metastases to lymph nodes [Recovering/Resolving]
  - Intervertebral disc degeneration [Unknown]
  - Atrial fibrillation [Unknown]
  - Laryngeal oedema [Unknown]
  - Arteriosclerosis coronary artery [Unknown]
  - Type 2 diabetes mellitus [Unknown]
  - Dysphonia [Unknown]
  - Idiopathic pulmonary fibrosis [Unknown]
  - Klippel-Feil syndrome [Unknown]
  - Rheumatic disorder [Unknown]
  - Arrhythmia [Unknown]
  - Rheumatoid arthritis [Unknown]
  - Dyspnoea [Unknown]
  - Aortic arteriosclerosis [Unknown]
  - Glaucoma [Unknown]
  - Cardiac steatosis [Unknown]
  - Obstructive sleep apnoea syndrome [Unknown]
  - Emphysema [Unknown]
  - Emotional distress [Unknown]
  - Chronic obstructive pulmonary disease [Unknown]
  - Goitre [Unknown]
  - Hepatic steatosis [Unknown]
  - Renal cyst [Unknown]

NARRATIVE: CASE EVENT DATE: 20190429
